FAERS Safety Report 18223405 (Version 2)
Quarter: 2020Q4

REPORT INFORMATION
  Report Type: Spontaneous
  Country: US (occurrence: US)
  Receive Date: 20200902
  Receipt Date: 20201102
  Transmission Date: 20210113
  Serious: No
  Sender: FDA-Public Use
  Company Number: US-ALLERGAN-2032132US

PATIENT
  Sex: Female

DRUGS (4)
  1. CARAFATE [Suspect]
     Active Substance: SUCRALFATE
     Indication: OESOPHAGITIS
     Dosage: UNK
     Route: 065
     Dates: start: 20181203, end: 20181209
  2. PROTONIX [Concomitant]
     Active Substance: PANTOPRAZOLE SODIUM
     Indication: GASTROENTERITIS
  3. PROTONIX [Concomitant]
     Active Substance: PANTOPRAZOLE SODIUM
     Indication: OESOPHAGITIS
     Dosage: UNK
     Dates: start: 20181203, end: 20181209
  4. CARAFATE [Suspect]
     Active Substance: SUCRALFATE
     Indication: GASTROENTERITIS

REACTIONS (1)
  - Off label use [Unknown]
